FAERS Safety Report 17365900 (Version 1)
Quarter: 2020Q1

REPORT INFORMATION
  Report Type: Spontaneous
  Country: BR (occurrence: BR)
  Receive Date: 20200204
  Receipt Date: 20200204
  Transmission Date: 20200409
  Serious: Yes (Other)
  Sender: FDA-Public Use
  Company Number: PHHY2019BR109725

PATIENT
  Sex: Female
  Weight: 74 kg

DRUGS (3)
  1. RASILEZ [Suspect]
     Active Substance: ALISKIREN
     Indication: HYPERTENSION
     Dosage: 1 DF, Q24H
     Route: 048
     Dates: start: 200704
  2. DIOVAN [Suspect]
     Active Substance: VALSARTAN
     Indication: PRODUCT USED FOR UNKNOWN INDICATION
     Dosage: 320 MG, UNKNOWN
     Route: 065
  3. CHOLESTEROL [Concomitant]
     Active Substance: CHOLESTEROL
     Indication: BLOOD CHOLESTEROL ABNORMAL
     Dosage: UNK(DURING 3 MONTHS)
     Route: 065
     Dates: start: 2007

REACTIONS (10)
  - Haemorrhoids thrombosed [Recovered/Resolved]
  - Asthenia [Not Recovered/Not Resolved]
  - Blood pressure increased [Unknown]
  - Weight decreased [Recovering/Resolving]
  - Decreased immune responsiveness [Not Recovered/Not Resolved]
  - Malaise [Not Recovered/Not Resolved]
  - Emotional distress [Not Recovered/Not Resolved]
  - Tremor [Not Recovered/Not Resolved]
  - Nervousness [Unknown]
  - Panic disorder [Recovered/Resolved]

NARRATIVE: CASE EVENT DATE: 2011
